FAERS Safety Report 12466162 (Version 2)
Quarter: 2016Q2

REPORT INFORMATION
  Report Type: Spontaneous
  Country: JP (occurrence: JP)
  Receive Date: 20160614
  Receipt Date: 20160623
  Transmission Date: 20160815
  Serious: Yes (Other)
  Sender: FDA-Public Use
  Company Number: JP-VALIDUS PHARMACEUTICALS LLC-JP-2016VAL002075

PATIENT
  Age: 24 Year
  Sex: Female

DRUGS (9)
  1. REMIFENTANIL [Suspect]
     Active Substance: REMIFENTANIL
     Indication: MAINTENANCE OF ANAESTHESIA
     Dosage: 450 - 1125 UG/HR, 0.1-0.25 MCG/KG/MIN
  2. REMIFENTANIL [Suspect]
     Active Substance: REMIFENTANIL
     Dosage: 0.3 UG/KG UNK
  3. FUROSEMIDE. [Concomitant]
     Active Substance: FUROSEMIDE
     Indication: PRODUCT USED FOR UNKNOWN INDICATION
  4. ROPIVACAINE [Concomitant]
     Active Substance: ROPIVACAINE
     Indication: PRODUCT USED FOR UNKNOWN INDICATION
  5. METOPROLOL TARTRATE. [Suspect]
     Active Substance: METOPROLOL TARTRATE
     Indication: CARDIAC FAILURE
     Dosage: 20 MG, UNK
     Route: 048
  6. PROPOFOL. [Suspect]
     Active Substance: PROPOFOL
     Indication: MAINTENANCE OF ANAESTHESIA
     Dosage: 150 MG, (2 - 3 NG/ML); INFUSION
  7. RANITIDINE HYDROCHLORIDE. [Suspect]
     Active Substance: RANITIDINE HYDROCHLORIDE
     Indication: ANAESTHETIC PREMEDICATION
     Dosage: 150 MG, UNK
     Route: 048
  8. ROCURONIUM BROMIDE. [Suspect]
     Active Substance: ROCURONIUM BROMIDE
     Indication: PRODUCT USED FOR UNKNOWN INDICATION
     Dosage: 70 MG, UNK
  9. FENTANYL. [Concomitant]
     Active Substance: FENTANYL
     Indication: PRODUCT USED FOR UNKNOWN INDICATION

REACTIONS (6)
  - Concomitant disease aggravated [Unknown]
  - Maternal exposure during pregnancy [Unknown]
  - Decreased activity [Unknown]
  - Supraventricular extrasystoles [Unknown]
  - Mitral valve incompetence [Unknown]
  - Cardiac output decreased [Unknown]
